FAERS Safety Report 16986435 (Version 1)
Quarter: 2019Q4

REPORT INFORMATION
  Report Type: Spontaneous
  Country: US (occurrence: US)
  Receive Date: 20191101
  Receipt Date: 20191101
  Transmission Date: 20200122
  Serious: No
  Sender: FDA-Public Use
  Company Number: US-ASTRAZENECA-2019SF11051

PATIENT
  Age: 25248 Day
  Sex: Female
  Weight: 74.8 kg

DRUGS (5)
  1. HYDROCHLOROTHIAZIDE. [Concomitant]
     Active Substance: HYDROCHLOROTHIAZIDE
     Indication: HYPERTENSION
     Route: 048
  2. NIACIN. [Concomitant]
     Active Substance: NIACIN
     Indication: BLOOD CHOLESTEROL INCREASED
     Route: 048
  3. MULTIVITAMIN [Concomitant]
     Active Substance: VITAMINS
  4. BYDUREON BCISE [Suspect]
     Active Substance: EXENATIDE
     Indication: TYPE 2 DIABETES MELLITUS
     Route: 058
     Dates: start: 20190715
  5. CALCIUM [Concomitant]
     Active Substance: CALCIUM

REACTIONS (18)
  - Dehydration [Unknown]
  - Limb discomfort [Unknown]
  - Heart rate increased [Unknown]
  - Injection site erythema [Recovered/Resolved]
  - Injection site nodule [Not Recovered/Not Resolved]
  - Tachycardia [Unknown]
  - Injection site swelling [Recovered/Resolved]
  - Diarrhoea [Unknown]
  - Constipation [Unknown]
  - Hypophagia [Unknown]
  - Injection site discolouration [Unknown]
  - Injection site mass [Unknown]
  - Hypertension [Unknown]
  - Injection site warmth [Recovered/Resolved]
  - Malaise [Unknown]
  - Nausea [Unknown]
  - Pain [Unknown]
  - Injection site urticaria [Not Recovered/Not Resolved]

NARRATIVE: CASE EVENT DATE: 20190715
